FAERS Safety Report 23194556 (Version 1)
Quarter: 2023Q4

REPORT INFORMATION
  Report Type: Spontaneous
  Country: US (occurrence: US)
  Receive Date: 20231117
  Receipt Date: 20231117
  Transmission Date: 20240109
  Serious: No
  Sender: FDA-Public Use
  Company Number: US-GSKCCFUS-Case-01856534_AE-103681

PATIENT
  Sex: Female

DRUGS (1)
  1. TRELEGY ELLIPTA [Suspect]
     Active Substance: FLUTICASONE FUROATE\UMECLIDINIUM BROMIDE\VILANTEROL TRIFENATATE
     Indication: Chronic obstructive pulmonary disease
     Dosage: UNK, 200/62.5/25MCG
     Route: 055
     Dates: start: 20231108

REACTIONS (5)
  - Dry throat [Unknown]
  - Dry mouth [Unknown]
  - Labelled drug-disease interaction medication error [Unknown]
  - Incorrect dose administered [Unknown]
  - Extra dose administered [Unknown]
